FAERS Safety Report 22792378 (Version 4)
Quarter: 2024Q1

REPORT INFORMATION
  Report Type: Spontaneous
  Country: CA (occurrence: CA)
  Receive Date: 20230807
  Receipt Date: 20240220
  Transmission Date: 20240410
  Serious: Yes (Other)
  Sender: FDA-Public Use
  Company Number: CA-CELLTRION INC.-2023CA015566

PATIENT

DRUGS (7)
  1. INFLECTRA [Suspect]
     Active Substance: INFLIXIMAB-DYYB
     Indication: Crohn^s disease
     Dosage: 10 MG/KG INDUCTION WEEKS 0 (HOSPITAL), 2, 6 MAINTENANCE Q 8 WEEKS
     Route: 042
     Dates: start: 20230617
  2. INFLECTRA [Suspect]
     Active Substance: INFLIXIMAB-DYYB
     Dosage: 10 MG/KG INDUCTION WEEKS 2 (HOSPITAL), 2, 6 MAINTENANCE Q 8 WEEKS
     Route: 042
     Dates: start: 20230705
  3. INFLECTRA [Suspect]
     Active Substance: INFLIXIMAB-DYYB
     Dosage: 900 MG, (10MG/KG), WEEK 6
     Route: 042
     Dates: start: 20230731
  4. INFLECTRA [Suspect]
     Active Substance: INFLIXIMAB-DYYB
     Dosage: 900 MG, EVERY 8 WEEKS AND 1 DAY
     Route: 042
     Dates: start: 20230926
  5. INFLECTRA [Suspect]
     Active Substance: INFLIXIMAB-DYYB
     Dosage: 970 MG, AFTER 7 WEEKS AND 6 DAYS (EVERY 8 WEEKS)
     Route: 042
     Dates: start: 20231120
  6. INFLECTRA [Suspect]
     Active Substance: INFLIXIMAB-DYYB
     Dosage: 1000 MG, 12 WEEKS,(EVERY 8 WEEKS.)
     Route: 042
     Dates: start: 20240212
  7. METHOTREXATE [Concomitant]
     Active Substance: METHOTREXATE
     Dosage: 1 MG
     Route: 048

REACTIONS (6)
  - Haematochezia [Recovered/Resolved]
  - Condition aggravated [Recovering/Resolving]
  - Abdominal distension [Unknown]
  - Increased appetite [Unknown]
  - Off label use [Unknown]
  - Inappropriate schedule of product administration [Unknown]

NARRATIVE: CASE EVENT DATE: 20230101
